FAERS Safety Report 9399920 (Version 1)
Quarter: 2013Q3

REPORT INFORMATION
  Report Type: Spontaneous
  Country: KR (occurrence: KR)
  Receive Date: 20130715
  Receipt Date: 20130715
  Transmission Date: 20140515
  Serious: Yes (Death)
  Sender: FDA-Public Use
  Company Number: KR-ROXANE LABORATORIES, INC.-2013-RO-01148RO

PATIENT
  Age: 30 Year
  Sex: Female

DRUGS (4)
  1. FLUCONAZOLE [Suspect]
     Indication: ANTIFUNGAL PROPHYLAXIS
     Dosage: 100 MG
  2. CYCLOPHOSPHAMIDE TABLETS USP [Suspect]
     Indication: ACUTE MYELOID LEUKAEMIA
  3. ALEMTUZUMAB [Suspect]
     Indication: ACUTE MYELOID LEUKAEMIA
  4. BUSULFAN [Suspect]
     Indication: ACUTE MYELOID LEUKAEMIA

REACTIONS (1)
  - Aspergillus infection [Fatal]
